FAERS Safety Report 8774644 (Version 1)
Quarter: 2012Q4

REPORT INFORMATION
  Report Type: 
  Country: DE (occurrence: DE)
  Receive Date: 20120907
  Receipt Date: 20120907
  Transmission Date: 20130627
  Serious: Yes (Life-Threatening)
  Sender: FDA-Public Use
  Company Number: DE-009507513-1208DEU012211

PATIENT
  Age: 48 Year
  Sex: Female
  Weight: 55 kg

DRUGS (1)
  1. ZOELY [Suspect]
     Indication: CONTRACEPTION
     Dosage: 1 DF, qd
     Route: 048
     Dates: start: 20120713, end: 20120723

REACTIONS (8)
  - Paraesthesia oral [Not Recovered/Not Resolved]
  - Glossodynia [Not Recovered/Not Resolved]
  - Respiratory distress [Unknown]
  - Swollen tongue [Unknown]
  - Respiratory distress [Unknown]
  - Respiratory distress [Unknown]
  - Swollen tongue [Unknown]
  - Swollen tongue [Unknown]
